FAERS Safety Report 9770732 (Version 1)
Quarter: 2013Q4

REPORT INFORMATION
  Report Type: Spontaneous
  Country: NO (occurrence: NO)
  Receive Date: 20131218
  Receipt Date: 20131218
  Transmission Date: 20140711
  Serious: Yes (Other)
  Sender: FDA-Public Use
  Company Number: NO-ACTAVIS-2013-22947

PATIENT
  Age: 47 Year
  Sex: Female

DRUGS (1)
  1. DICLOFENAC (UNKNOWN) [Suspect]
     Indication: INFLAMMATORY PAIN
     Dosage: 50 MG, TID
     Route: 048
     Dates: start: 20131125, end: 20131125

REACTIONS (3)
  - Hypersensitivity [Recovering/Resolving]
  - Swelling face [Recovering/Resolving]
  - Joint swelling [Recovering/Resolving]
